FAERS Safety Report 9345864 (Version 1)
Quarter: 2013Q2

REPORT INFORMATION
  Report Type: Spontaneous
  Country: US (occurrence: US)
  Receive Date: 20130613
  Receipt Date: 20130613
  Transmission Date: 20140414
  Serious: Yes (Hospitalization, Other)
  Sender: FDA-Public Use
  Company Number: US-PFIZER INC-2013174887

PATIENT
  Sex: Male

DRUGS (5)
  1. IRINOTECAN HCL [Suspect]
     Dosage: 1 DAY, CYCLIC
     Route: 042
     Dates: start: 201211
  2. FLUOROURACIL [Suspect]
     Dosage: 1 DAY, CYCLIC
     Route: 042
     Dates: start: 201211
  3. FOLINIC ACID [Suspect]
     Dosage: 1 DAY, CYCLIC
     Route: 042
     Dates: start: 201211
  4. ZALTRAP [Suspect]
     Dosage: 1 DAY, CYCLIC
     Route: 042
  5. INSULIN [Concomitant]
     Indication: DIABETES MELLITUS
     Dosage: UNK

REACTIONS (2)
  - Transient ischaemic attack [Recovered/Resolved]
  - Hyperglycaemia [Recovered/Resolved]
